FAERS Safety Report 23303372 (Version 2)
Quarter: 2024Q1

REPORT INFORMATION
  Report Type: Spontaneous
  Country: JP (occurrence: JP)
  Receive Date: 20231215
  Receipt Date: 20240102
  Transmission Date: 20240410
  Serious: Yes (Other)
  Sender: FDA-Public Use
  Company Number: JP-shionogiph-202314093_OTR_P_1

PATIENT
  Age: 6 Decade
  Sex: Female

DRUGS (4)
  1. OXYCONTIN [Suspect]
     Active Substance: OXYCODONE HYDROCHLORIDE
     Indication: Adenocarcinoma gastric
     Dosage: 460 MILLIGRAM, DAILY
     Route: 048
     Dates: start: 20230906
  2. METHADONE HYDROCHLORIDE [Suspect]
     Active Substance: METHADONE HYDROCHLORIDE
     Indication: Adenocarcinoma gastric
     Dosage: 35 MILLIGRAM, DAILY
     Route: 048
     Dates: start: 20230904
  3. OXYCODONE HYDROCHLORIDE [Suspect]
     Active Substance: OXYCODONE HYDROCHLORIDE
     Indication: Adenocarcinoma gastric
     Dosage: 460 MILLIGRAM, DAILY
     Route: 048
     Dates: start: 20230906
  4. ENORAS [Concomitant]
     Indication: Product used for unknown indication
     Dosage: 187.5 MILLILITER, DAILY
     Route: 065

REACTIONS (1)
  - Hypokalaemia [Not Recovered/Not Resolved]

NARRATIVE: CASE EVENT DATE: 20231011
